FAERS Safety Report 17369724 (Version 1)
Quarter: 2020Q1

REPORT INFORMATION
  Report Type: Report from Study
  Country: None (occurrence: BE)
  Receive Date: 20200205
  Receipt Date: 20200205
  Transmission Date: 20200409
  Serious: Yes (Other)
  Sender: FDA-Public Use
  Company Number: BE-ABBVIE-20K-013-3260262-00

PATIENT
  Sex: Female
  Weight: 68 kg

DRUGS (3)
  1. DUODOPA [Suspect]
     Active Substance: CARBIDOPA\LEVODOPA
     Dosage: MD=0ML, CD=2.0ML/HR DURING 16HRS, ED=0.8ML
     Route: 050
     Dates: start: 20190920
  2. DUODOPA [Suspect]
     Active Substance: CARBIDOPA\LEVODOPA
     Indication: PARKINSON^S DISEASE
     Dosage: UNKNOWN DOSAGES
     Route: 050
     Dates: start: 20190308, end: 20190510
  3. DUODOPA [Suspect]
     Active Substance: CARBIDOPA\LEVODOPA
     Dosage: MD=0ML, CD=2.2ML/HR DURING 16HRS, ED=0.8ML
     Route: 050
     Dates: start: 20190510, end: 20190920

REACTIONS (7)
  - Device material issue [Unknown]
  - Stoma site erythema [Unknown]
  - Device dislocation [Unknown]
  - Lower limb fracture [Unknown]
  - Mobility decreased [Unknown]
  - On and off phenomenon [Unknown]
  - Fall [Unknown]

NARRATIVE: CASE EVENT DATE: 20191212
